FAERS Safety Report 13756258 (Version 2)
Quarter: 2017Q3

REPORT INFORMATION
  Report Type: Spontaneous
  Country: US (occurrence: US)
  Receive Date: 20170714
  Receipt Date: 20170718
  Transmission Date: 20171127
  Serious: No
  Sender: FDA-Public Use
  Company Number: US-009507513-1706USA010641

PATIENT

DRUGS (6)
  1. XOLAIR [Concomitant]
     Active Substance: OMALIZUMAB
  2. INTRON A [Suspect]
     Active Substance: INTERFERON ALFA-2B
     Indication: HEPATITIS C
     Dosage: UNK
     Dates: start: 201205
  3. VERAPAMIL HYDROCHLORIDE. [Concomitant]
     Active Substance: VERAPAMIL HYDROCHLORIDE
  4. SPIRIVA [Concomitant]
     Active Substance: TIOTROPIUM BROMIDE MONOHYDRATE
  5. SYMBICORT [Concomitant]
     Active Substance: BUDESONIDE\FORMOTEROL FUMARATE DIHYDRATE
  6. DOXAZOSIN [Concomitant]
     Active Substance: DOXAZOSIN\DOXAZOSIN MESYLATE

REACTIONS (1)
  - Dry mouth [Unknown]
